FAERS Safety Report 18962991 (Version 3)
Quarter: 2022Q4

REPORT INFORMATION
  Report Type: Report from Study
  Country: US (occurrence: US)
  Receive Date: 20210303
  Receipt Date: 20221108
  Transmission Date: 20230113
  Serious: Yes (Other)
  Sender: FDA-Public Use
  Company Number: US-TAKEDA-US201927050

PATIENT
  Age: 69 Year
  Sex: Female

DRUGS (12)
  1. TEDUGLUTIDE [Suspect]
     Active Substance: TEDUGLUTIDE
     Indication: Short-bowel syndrome
     Dosage: UNK, QD
     Route: 058
     Dates: start: 20180103, end: 20210209
  2. TEDUGLUTIDE [Suspect]
     Active Substance: TEDUGLUTIDE
     Indication: Short-bowel syndrome
     Dosage: UNK, QD
     Route: 058
     Dates: start: 20180103, end: 20210209
  3. TEDUGLUTIDE [Suspect]
     Active Substance: TEDUGLUTIDE
     Indication: Short-bowel syndrome
     Dosage: UNK, QD
     Route: 058
     Dates: start: 20180103, end: 20210209
  4. TEDUGLUTIDE [Suspect]
     Active Substance: TEDUGLUTIDE
     Indication: Short-bowel syndrome
     Dosage: UNK, QD
     Route: 058
     Dates: start: 20180103, end: 20210209
  5. TEDUGLUTIDE [Suspect]
     Active Substance: TEDUGLUTIDE
     Dosage: 0.43 MILLILITER, QD
     Route: 050
     Dates: start: 20180103
  6. TEDUGLUTIDE [Suspect]
     Active Substance: TEDUGLUTIDE
     Dosage: 0.43 MILLILITER, QD
     Route: 050
     Dates: start: 20180103
  7. TEDUGLUTIDE [Suspect]
     Active Substance: TEDUGLUTIDE
     Dosage: 0.43 MILLILITER, QD
     Route: 050
     Dates: start: 20180103
  8. TEDUGLUTIDE [Suspect]
     Active Substance: TEDUGLUTIDE
     Dosage: 0.43 MILLILITER, QD
     Route: 050
     Dates: start: 20180103
  9. TEDUGLUTIDE [Suspect]
     Active Substance: TEDUGLUTIDE
     Dosage: UNK, QD
     Route: 050
     Dates: start: 20211103
  10. TEDUGLUTIDE [Suspect]
     Active Substance: TEDUGLUTIDE
     Dosage: UNK, QD
     Route: 050
     Dates: start: 20211103
  11. TEDUGLUTIDE [Suspect]
     Active Substance: TEDUGLUTIDE
     Dosage: UNK, QD
     Route: 050
     Dates: start: 20211103
  12. TEDUGLUTIDE [Suspect]
     Active Substance: TEDUGLUTIDE
     Dosage: UNK, QD
     Route: 050
     Dates: start: 20211103

REACTIONS (6)
  - Lung disorder [Unknown]
  - Polyp [Unknown]
  - Weight increased [Unknown]
  - Product dose omission issue [Recovered/Resolved]
  - Inability to afford medication [Unknown]
  - Weight decreased [Unknown]

NARRATIVE: CASE EVENT DATE: 20210209
